FAERS Safety Report 5528106-4 (Version None)
Quarter: 2007Q4

REPORT INFORMATION
  Report Type: 
  Country: None (occurrence: None)
  Receive Date: 20071126
  Receipt Date: 20071126
  Transmission Date: 20080405
  Serious: Yes (Other)
  Sender: FDA-Public Use
  Company Number: None

PATIENT
  Age: 82 Year
  Sex: Male
  Weight: 61.2356 kg

DRUGS (1)
  1. SPIRONOLACTONE [Suspect]
     Indication: HYPERTENSION
     Dosage: ONCE A DAY - ONE TABLET   IN AM.  PO
     Route: 048
     Dates: start: 20060714, end: 20071120

REACTIONS (3)
  - BREAST PAIN [None]
  - BREAST TENDERNESS [None]
  - GYNAECOMASTIA [None]
